FAERS Safety Report 19484792 (Version 1)
Quarter: 2021Q3

REPORT INFORMATION
  Report Type: Spontaneous
  Country: AT (occurrence: AT)
  Receive Date: 20210701
  Receipt Date: 20210701
  Transmission Date: 20211014
  Serious: Yes (Other)
  Sender: FDA-Public Use
  Company Number: AT-INCYTE CORPORATION-2021IN004780

PATIENT

DRUGS (1)
  1. JAKAVI [Suspect]
     Active Substance: RUXOLITINIB
     Indication: PRIMARY MYELOFIBROSIS
     Dosage: 5 MG, BID
     Route: 048
     Dates: start: 201507

REACTIONS (3)
  - Coronary artery disease [Unknown]
  - Squamous cell carcinoma [Unknown]
  - Thyroid cancer [Unknown]

NARRATIVE: CASE EVENT DATE: 20190920
